FAERS Safety Report 4772962-4 (Version None)
Quarter: 2005Q3

REPORT INFORMATION
  Report Type: 
  Country: None (occurrence: None)
  Receive Date: 20050916
  Receipt Date: 20050906
  Transmission Date: 20060218
  Serious: Yes (Death, Hospitalization, Disabling, Other)
  Sender: FDA-Public Use
  Company Number: 2005085499

PATIENT
  Age: 77 Year
  Sex: Male
  Weight: 52 kg

DRUGS (14)
  1. FRAGMIN [Suspect]
     Indication: PULMONARY EMBOLISM
     Dosage: 2500 I.U. (1 D), INTRAVENOUS
     Route: 042
     Dates: start: 20041222, end: 20041223
  2. CORTICOSTEROIDS (CORTICOSTEROIDS) [Suspect]
     Indication: ILL-DEFINED DISORDER
  3. CONIEL (BENIDIPINE HYDROCHLORIDE) [Concomitant]
  4. CIBACEN (BENAZEPRIL HYDROCHLORIDE) [Concomitant]
  5. DORNER (BERAPROST SODIUM) [Concomitant]
  6. ANPLAG (SARPOGRELATE HYDROCHORIDE) [Concomitant]
  7. LENDORM [Concomitant]
  8. NOVOLIN R [Concomitant]
  9. ELASPOL (SIVELESTAT) [Concomitant]
  10. ISOSORBIDE DINITRATE [Concomitant]
  11. RED BLOOD CELLS [Concomitant]
  12. PLASMA [Concomitant]
  13. ALL OTHER NON-THERAPEUTIC PRODUCTS (ALL OTHER NON-THERAPEUTIC PRODUCTS [Concomitant]
  14. ANAESTHETICS, LOCAL (ANAESTHETICS, LOCAL) [Concomitant]

REACTIONS (26)
  - ABDOMINAL INFECTION [None]
  - ACUTE RESPIRATORY DISTRESS SYNDROME [None]
  - ANASTOMOTIC LEAK [None]
  - ATELECTASIS [None]
  - CONDITION AGGRAVATED [None]
  - DIPLEGIA [None]
  - DISSEMINATED INTRAVASCULAR COAGULATION [None]
  - EXTRADURAL HAEMATOMA [None]
  - GENERAL PHYSICAL CONDITION ABNORMAL [None]
  - HAEMODIALYSIS [None]
  - HEPATIC FAILURE [None]
  - HYPOXIA [None]
  - INFECTION [None]
  - INTRA-ABDOMINAL HAEMORRHAGE [None]
  - LUNG INJURY [None]
  - MULTI-ORGAN FAILURE [None]
  - MUSCULAR WEAKNESS [None]
  - NEUROLOGICAL SYMPTOM [None]
  - PNEUMONIA [None]
  - POST PROCEDURAL COMPLICATION [None]
  - PRODUCTIVE COUGH [None]
  - RENAL FAILURE [None]
  - RESPIRATORY FAILURE [None]
  - SENSORY LOSS [None]
  - SEPSIS [None]
  - SPINAL CORD COMPRESSION [None]
